FAERS Safety Report 8498141 (Version 8)
Quarter: 2015Q2

REPORT INFORMATION
  Report Type: Spontaneous
  Country: US (occurrence: US)
  Receive Date: 20120406
  Receipt Date: 20150410
  Transmission Date: 20150821
  Serious: Yes (Hospitalization, Other)
  Sender: FDA-Public Use
  Company Number: US-009507513-1204USA00646

PATIENT
  Sex: Female
  Weight: 69.85 kg

DRUGS (14)
  1. BONIVA [Suspect]
     Active Substance: IBANDRONATE SODIUM
     Indication: OSTEOPOROSIS
     Dosage: 150 MG, UNK
     Dates: start: 20070222, end: 20080521
  2. ASCORBIC ACID. [Concomitant]
     Active Substance: ASCORBIC ACID
     Dosage: 1000 IU, UNK
     Dates: start: 1992
  3. CHONDROITIN SULFATE SODIUM (+) GLUCOSAMINE SULFATE [Concomitant]
     Dosage: UNK, BID
     Dates: start: 1992
  4. FOSAMAX [Suspect]
     Active Substance: ALENDRONATE SODIUM
     Indication: OSTEOPOROSIS
     Route: 048
     Dates: end: 201008
  5. CALCIUM (UNSPECIFIED) [Concomitant]
     Active Substance: CALCIUM
     Dosage: 600-3000 MG, QD
     Dates: start: 1992
  6. OMEGA-3 MARINE TRIGLYCERIDES [Concomitant]
     Active Substance: FISH OIL
     Dosage: 3000 MG, UNK
     Dates: start: 1992
  7. PREVACID [Concomitant]
     Active Substance: LANSOPRAZOLE
     Indication: GASTROOESOPHAGEAL REFLUX DISEASE
  8. PREMPRO [Concomitant]
     Active Substance: ESTROGENS, CONJUGATED\MEDROXYPROGESTERONE ACETATE
     Indication: HORMONE REPLACEMENT THERAPY
  9. ALENDRONATE SODIUM. [Suspect]
     Active Substance: ALENDRONATE SODIUM
     Indication: OSTEOPOROSIS
     Dosage: 70 MG QW
     Route: 048
     Dates: start: 20081001, end: 20090731
  10. VITAMIN D [Concomitant]
     Active Substance: CHOLECALCIFEROL
     Dosage: 1000 MG, QD
     Dates: start: 1992
  11. ALENDRONATE SODIUM. [Suspect]
     Active Substance: ALENDRONATE SODIUM
     Indication: OSTEOPOROSIS
     Dosage: 70 MG QW
     Route: 048
     Dates: start: 20091027, end: 20100513
  12. FOSAMAX [Suspect]
     Active Substance: ALENDRONATE SODIUM
     Indication: OSTEOPOROSIS
     Dosage: 70 MG, QW
     Route: 048
     Dates: start: 20040527
  13. MAGNESIUM (UNSPECIFIED) (+) ZINC (UNSPECIFIED) [Concomitant]
     Dosage: 600 MG, UNK
     Dates: start: 1992
  14. VITAMIN E [Concomitant]
     Active Substance: .ALPHA.-TOCOPHEROL
     Dosage: 100 MG, UNK
     Dates: start: 1992

REACTIONS (34)
  - Anaemia postoperative [Unknown]
  - Vomiting [Unknown]
  - Mitral valve incompetence [Unknown]
  - Carpal tunnel syndrome [Unknown]
  - Intervertebral disc disorder [Unknown]
  - Spondylolisthesis [Unknown]
  - Psoriasis [Unknown]
  - Pollakiuria [Recovering/Resolving]
  - Cyst [Unknown]
  - Radiculopathy [Unknown]
  - Femur fracture [Unknown]
  - Carotid pulse abnormal [Unknown]
  - Oedema peripheral [Unknown]
  - Vertebral foraminal stenosis [Unknown]
  - Rectocele [Unknown]
  - Femur fracture [Unknown]
  - Chronic obstructive pulmonary disease [Unknown]
  - Uterine prolapse [Unknown]
  - Cystitis [Unknown]
  - Femur fracture [Recovering/Resolving]
  - Dyslipidaemia [Unknown]
  - Muscle spasms [Unknown]
  - Cyst [Unknown]
  - Nausea [Unknown]
  - Low turnover osteopathy [Unknown]
  - Upper respiratory tract infection [Unknown]
  - Benign breast lump removal [Unknown]
  - Hypertension [Unknown]
  - Hypertonic bladder [Unknown]
  - Headache [Unknown]
  - Bradycardia [Unknown]
  - Osteoarthritis [Unknown]
  - Cystocele [Unknown]
  - Arthritis [Unknown]

NARRATIVE: CASE EVENT DATE: 2005
